FAERS Safety Report 10213325 (Version 1)
Quarter: 2014Q2

REPORT INFORMATION
  Report Type: Report from Study
  Country: AU (occurrence: None)
  Receive Date: 20140529
  Receipt Date: 20140529
  Transmission Date: 20141212
  Serious: Yes (Death, Other)
  Sender: FDA-Public Use
  Company Number: 2014-19612

PATIENT
  Sex: Male

DRUGS (1)
  1. EYLEA (AFLIBERCEPT) (INJECTION) [Suspect]
     Indication: AGE-RELATED MACULAR DEGENERATION

REACTIONS (1)
  - Lymphoma [None]
